FAERS Safety Report 24068082 (Version 2)
Quarter: 2024Q3

REPORT INFORMATION
  Report Type: Spontaneous
  Country: US (occurrence: US)
  Receive Date: 20240710
  Receipt Date: 20240830
  Transmission Date: 20241016
  Serious: No
  Sender: NOVARTIS
  Company Number: US-002147023-NVSC2024US142236

PATIENT
  Age: 96 Year
  Sex: Male

DRUGS (2)
  1. PLUVICTO [Suspect]
     Active Substance: LUTETIUM LU-177 VIPIVOTIDE TETRAXETAN
     Indication: Prostate cancer metastatic
     Dosage: UNK (6 WEEKS)
     Route: 042
     Dates: start: 20240422
  2. PLUVICTO [Suspect]
     Active Substance: LUTETIUM LU-177 VIPIVOTIDE TETRAXETAN
     Dosage: UNK (6 WEEKS)
     Route: 042
     Dates: start: 20240603

REACTIONS (1)
  - General physical health deterioration [Recovering/Resolving]
